FAERS Safety Report 9619326 (Version 3)
Quarter: 2013Q4

REPORT INFORMATION
  Report Type: Spontaneous
  Country: GB (occurrence: GB)
  Receive Date: 20131014
  Receipt Date: 20131021
  Transmission Date: 20140711
  Serious: Yes (Other)
  Sender: FDA-Public Use
  Company Number: GB-009507513-1306GBR011019

PATIENT
  Age: 18 Year
  Sex: Female
  Weight: 66 kg

DRUGS (1)
  1. NEXPLANON [Suspect]
     Indication: CONTRACEPTION
     Dosage: DOSE FREQUENCY: 3 YR
     Route: 059
     Dates: start: 20120126, end: 20130618

REACTIONS (2)
  - Haemorrhage [Recovered/Resolved]
  - Device breakage [Recovered/Resolved]
